FAERS Safety Report 14308227 (Version 9)
Quarter: 2018Q3

REPORT INFORMATION
  Report Type: Spontaneous
  Country: US (occurrence: US)
  Receive Date: 20171220
  Receipt Date: 20180723
  Transmission Date: 20181010
  Serious: Yes (Hospitalization)
  Sender: FDA-Public Use
  Company Number: US-ACTELION-A-NJ2017-164459

PATIENT
  Age: 53 Year
  Sex: Female
  Weight: 38.95 kg

DRUGS (3)
  1. ELIQUIS [Concomitant]
     Active Substance: APIXABAN
  2. VELETRI [Suspect]
     Active Substance: EPOPROSTENOL
     Dosage: UNK
     Route: 042
  3. VELETRI [Suspect]
     Active Substance: EPOPROSTENOL
     Indication: PULMONARY HYPERTENSION
     Dosage: 18 NG/KG, PER MIN
     Route: 042

REACTIONS (18)
  - Dehydration [Unknown]
  - Chest pain [Unknown]
  - Catheter site swelling [Unknown]
  - Viral infection [Unknown]
  - Device related infection [Unknown]
  - Hypokalaemia [Unknown]
  - Nausea [Unknown]
  - Decreased appetite [Unknown]
  - Wrong technique in product usage process [Unknown]
  - Device occlusion [Unknown]
  - Catheter site pain [Unknown]
  - Diarrhoea [Unknown]
  - Fatigue [Unknown]
  - Catheter site discharge [Unknown]
  - Catheter site haemorrhage [Unknown]
  - Catheter site erythema [Unknown]
  - Tremor [Unknown]
  - Vomiting [Unknown]

NARRATIVE: CASE EVENT DATE: 20180224
